FAERS Safety Report 4680950-1 (Version None)
Quarter: 2005Q2

REPORT INFORMATION
  Report Type: 
  Country: None (occurrence: None)
  Receive Date: 20050601
  Receipt Date: 20050518
  Transmission Date: 20051028
  Serious: Yes (Hospitalization)
  Sender: FDA-Public Use
  Company Number: 2005-127557-NL

PATIENT
  Age: 28 Year
  Sex: Female

DRUGS (4)
  1. NUVARING [Suspect]
     Dosage: DF
     Dates: start: 20040319
  2. METRONIDAZOLE [Concomitant]
  3. EURIOLAC [Concomitant]
  4. LACTOBACILLUS ACIDOPHILUS [Concomitant]

REACTIONS (6)
  - ABORTION SPONTANEOUS [None]
  - ANTEPARTUM HAEMORRHAGE [None]
  - DEVICE FAILURE [None]
  - DRUG EXPOSURE DURING PREGNANCY [None]
  - PELVIC PAIN [None]
  - UNINTENDED PREGNANCY [None]
